FAERS Safety Report 6253132-X (Version None)
Quarter: 2009Q2

REPORT INFORMATION
  Report Type: 
  Country: None (occurrence: None)
  Receive Date: 20090629
  Receipt Date: 20090629
  Transmission Date: 20091009
  Serious: Yes (Life-Threatening, Disabling)
  Sender: FDA-Public Use
  Company Number: None

PATIENT
  Age: 48 Year
  Sex: Female
  Weight: 72.5755 kg

DRUGS (2)
  1. VERSED [Suspect]
     Indication: SEDATION
     Dates: start: 20070727, end: 20070727
  2. MORPHINE [Suspect]

REACTIONS (5)
  - ANXIETY [None]
  - DEPRESSION [None]
  - MEMORY IMPAIRMENT [None]
  - RESPIRATORY ARREST [None]
  - SIMILAR REACTION ON PREVIOUS EXPOSURE TO DRUG [None]
